FAERS Safety Report 10794164 (Version 6)
Quarter: 2015Q2

REPORT INFORMATION
  Report Type: Spontaneous
  Country: JP (occurrence: JP)
  Receive Date: 20150213
  Receipt Date: 20150612
  Transmission Date: 20150821
  Serious: Yes (Death, Life-Threatening, Hospitalization, Other)
  Sender: FDA-Public Use
  Company Number: JP-GLAXOSMITHKLINE-JP2015JPN016325

PATIENT
  Age: 65 Year
  Sex: Female
  Weight: 53 kg

DRUGS (12)
  1. SULPIRIDE [Concomitant]
     Active Substance: SULPIRIDE
     Dosage: UNK
  2. LAMICTAL [Suspect]
     Active Substance: LAMOTRIGINE
     Indication: BIPOLAR DISORDER
  3. ACINON [Concomitant]
     Active Substance: NIZATIDINE
     Dosage: UNK
  4. ABILIFY [Concomitant]
     Active Substance: ARIPIPRAZOLE
     Dosage: UNK
  5. LOXOPROFEN SODIUM HYDRATE [Suspect]
     Active Substance: LOXOPROFEN SODIUM DIHYDRATE
     Indication: NASOPHARYNGITIS
     Dosage: 60 MG, TID
     Route: 048
     Dates: start: 20150113, end: 20150114
  6. PREDONINE [Suspect]
     Active Substance: PREDNISOLONE\PREDNISOLONE ACETATE\PREDNISOLONE SODIUM SUCCINATE
     Dosage: 500 MG, 1D
     Route: 042
     Dates: start: 201502
  7. VALPROATE SODIUM. [Concomitant]
     Active Substance: VALPROATE SODIUM
     Dosage: UNK
  8. LAMICTAL [Suspect]
     Active Substance: LAMOTRIGINE
     Indication: DEPRESSION
     Dosage: 100 MG, QD
     Route: 048
     Dates: start: 20141213, end: 20150120
  9. ETIZOLAM [Concomitant]
     Active Substance: ETIZOLAM
     Dosage: UNK
  10. CYMBALTA [Concomitant]
     Active Substance: DULOXETINE HYDROCHLORIDE
     Dosage: UNK
  11. PREDONINE [Suspect]
     Active Substance: PREDNISOLONE\PREDNISOLONE ACETATE\PREDNISOLONE SODIUM SUCCINATE
     Dosage: 60 MG, 1D
     Route: 048
     Dates: start: 20150124
  12. DEPROMEL [Concomitant]
     Active Substance: FLUVOXAMINE
     Dosage: UNK

REACTIONS (19)
  - Stevens-Johnson syndrome [Not Recovered/Not Resolved]
  - Drug reaction with eosinophilia and systemic symptoms [Recovering/Resolving]
  - Hypophagia [Unknown]
  - Pyrexia [Recovering/Resolving]
  - Infection susceptibility increased [Unknown]
  - Enanthema [Recovering/Resolving]
  - Rectal haemorrhage [Fatal]
  - Depressed level of consciousness [Unknown]
  - Nasopharyngitis [Unknown]
  - Hepatic function abnormal [Recovering/Resolving]
  - Viral infection [Unknown]
  - General physical health deterioration [Unknown]
  - Erythema of eyelid [Unknown]
  - Lymphadenopathy [Unknown]
  - Ocular hyperaemia [Unknown]
  - Scab [Recovering/Resolving]
  - Generalised erythema [Recovering/Resolving]
  - Rash generalised [Recovering/Resolving]
  - Drug eruption [Recovering/Resolving]

NARRATIVE: CASE EVENT DATE: 20150124
